FAERS Safety Report 5735536-4 (Version None)
Quarter: 2008Q2

REPORT INFORMATION
  Report Type: 
  Country: None (occurrence: None)
  Receive Date: 20080508
  Receipt Date: 20070709
  Transmission Date: 20081010
  Serious: Yes (Disabling, Other)
  Sender: FDA-Public Use
  Company Number: 2007RR-08609

PATIENT
  Age: 87 Year
  Sex: Female
  Weight: 52 kg

DRUGS (4)
  1. FLUOXETINE [Suspect]
     Indication: DEPRESSION
     Dosage: 20 MG, ORAL
     Route: 048
     Dates: start: 20070522, end: 20070611
  2. ADCAL-D3 (CALCIUM CARBONATE, COLECALCIFEROL) [Concomitant]
  3. CIMETIDINE [Concomitant]
  4. RISEDRONATE (RISEDRONATE ION) [Concomitant]

REACTIONS (1)
  - ANGLE CLOSURE GLAUCOMA [None]
